FAERS Safety Report 7596358-5 (Version None)
Quarter: 2011Q3

REPORT INFORMATION
  Report Type: 
  Country: None (occurrence: None)
  Receive Date: 20110707
  Receipt Date: 20110701
  Transmission Date: 20111222
  Serious: Yes (Hospitalization, Disabling)
  Sender: FDA-Public Use
  Company Number: DE-GILEAD-2011-0040219

PATIENT
  Sex: Male

DRUGS (11)
  1. METODURA ZNT [Concomitant]
  2. ISENTRESS [Concomitant]
  3. LOPERAMIDE [Concomitant]
  4. MCP AL [Concomitant]
  5. RAMIPRIL [Concomitant]
  6. TRUVADA [Suspect]
     Indication: HIV INFECTION
     Route: 048
     Dates: start: 20070316
  7. COTRIM [Concomitant]
  8. PANTOPRAZOLE [Concomitant]
  9. KALETRA [Concomitant]
     Indication: HIV INFECTION
  10. HCT BETA [Concomitant]
  11. MAGNESIUM VERLA N [Concomitant]

REACTIONS (1)
  - OSTEONECROSIS [None]
